FAERS Safety Report 23763515 (Version 1)
Quarter: 2024Q2

REPORT INFORMATION
  Report Type: Spontaneous
  Country: US (occurrence: US)
  Receive Date: 20240419
  Receipt Date: 20240419
  Transmission Date: 20240716
  Serious: No
  Sender: FDA-Public Use
  Company Number: US-SANDOZ-SDZ2024US005136

PATIENT
  Sex: Male

DRUGS (1)
  1. ALBUTEROL SULFATE [Suspect]
     Active Substance: ALBUTEROL SULFATE
     Indication: Product used for unknown indication
     Dosage: 90 MCG/DOS 200
     Route: 055

REACTIONS (3)
  - Product dose omission issue [Unknown]
  - Device issue [Unknown]
  - Product delivery mechanism issue [Unknown]
